FAERS Safety Report 9380300 (Version 1)
Quarter: 2013Q3

REPORT INFORMATION
  Report Type: Spontaneous
  Country: US (occurrence: None)
  Receive Date: 20130701
  Receipt Date: 20130701
  Transmission Date: 20140515
  Serious: No
  Sender: FDA-Public Use
  Company Number: None

PATIENT
  Sex: 0

DRUGS (1)
  1. RISPERIDONE [Suspect]

REACTIONS (8)
  - Malaise [None]
  - Malaise [None]
  - Asthenia [None]
  - Pain in extremity [None]
  - Walking aid user [None]
  - Sedation [None]
  - Toxicity to various agents [None]
  - Mental impairment [None]
